FAERS Safety Report 5453946-X (Version None)
Quarter: 2007Q3

REPORT INFORMATION
  Report Type: 
  Country: None (occurrence: None)
  Receive Date: 20070917
  Receipt Date: 20060815
  Transmission Date: 20080115
  Serious: No
  Sender: FDA-Public Use
  Company Number: US-ASTRAZENECA-2005UW04284

PATIENT
  Age: 52 Year
  Sex: Male

DRUGS (6)
  1. SEROQUEL [Suspect]
     Indication: ANXIETY
     Route: 048
  2. SEROQUEL [Suspect]
     Route: 048
  3. PROZAC [Concomitant]
  4. XANAX [Concomitant]
  5. NEXIUM [Concomitant]
     Route: 048
  6. M.V.I. [Concomitant]

REACTIONS (6)
  - COUGH [None]
  - DEPRESSION [None]
  - FACE OEDEMA [None]
  - HANGOVER [None]
  - OEDEMA PERIPHERAL [None]
  - WEIGHT INCREASED [None]
